FAERS Safety Report 19716113 (Version 1)
Quarter: 2021Q3

REPORT INFORMATION
  Report Type: Spontaneous
  Country: DE (occurrence: DE)
  Receive Date: 20210818
  Receipt Date: 20210818
  Transmission Date: 20211014
  Serious: Yes (Hospitalization)
  Sender: FDA-Public Use
  Company Number: DE-MYLANLABS-2021M1051667

PATIENT
  Age: 63 Year
  Sex: Male

DRUGS (8)
  1. ALLOPURINOL. [Concomitant]
     Active Substance: ALLOPURINOL
     Dosage: (100 MG, 0?1?0?0, TABLETTEN)
  2. PANTOPRAZOL                        /01263201/ [Concomitant]
     Active Substance: PANTOPRAZOLE
     Dosage: UNK (40 MG, 1?0?0?0, TABLETTEN)
  3. CLOPIDOGREL [Suspect]
     Active Substance: CLOPIDOGREL BISULFATE
     Indication: PRODUCT USED FOR UNKNOWN INDICATION
     Dosage: (75 MG, 1?0?0?0, TABLETTEN)
     Route: 065
  4. BISOPROLOL [Concomitant]
     Active Substance: BISOPROLOL
     Dosage: 1.25 MG, 1?0?1?0, TABLETTEN
  5. TORASEMID [Concomitant]
     Active Substance: TORSEMIDE
     Dosage: (10 MG, 0.5?0?0?0, TABLETTEN)
  6. METFORMIN AND SITAGLIPTIN [Concomitant]
     Active Substance: METFORMIN\SITAGLIPTIN
     Dosage: (1000|50 MG, 1?0?1?0, TABLETTEN)
  7. ENALAPRIL [Concomitant]
     Active Substance: ENALAPRIL
     Dosage: (20 MG, 1?0?0?0, TABLETTEN)
  8. ATORVASTATIN [Concomitant]
     Active Substance: ATORVASTATIN
     Dosage: (20 MG, 0?0?1?0, TABLETTEN)

REACTIONS (2)
  - Haematochezia [Unknown]
  - Anaemia [Unknown]
